FAERS Safety Report 9601988 (Version 2)
Quarter: 2014Q1

REPORT INFORMATION
  Report Type: Report from Study
  Country: CA (occurrence: CA)
  Receive Date: 20131007
  Receipt Date: 20140211
  Transmission Date: 20141002
  Serious: Yes (Hospitalization)
  Sender: FDA-Public Use
  Company Number: PHHY2013CA111105

PATIENT
  Age: 64 Year
  Sex: Female

DRUGS (4)
  1. ZOMETA [Suspect]
     Indication: BREAST CANCER
     Dosage: 4 MG, EVERY 4 WEEKS
     Route: 042
     Dates: start: 20130311, end: 20130912
  2. ZOMETA [Suspect]
     Indication: METASTASES TO BONE
  3. ZOMETA [Suspect]
     Indication: METASTASES TO CENTRAL NERVOUS SYSTEM
  4. ZOMETA [Suspect]
     Indication: METASTASES TO LIVER

REACTIONS (2)
  - Fall [Unknown]
  - Poor venous access [Unknown]
